FAERS Safety Report 9490597 (Version 1)
Quarter: 2013Q3

REPORT INFORMATION
  Report Type: Spontaneous
  Country: US (occurrence: None)
  Receive Date: 20130828
  Receipt Date: 20130828
  Transmission Date: 20140515
  Serious: Yes (Hospitalization)
  Sender: FDA-Public Use
  Company Number: None

PATIENT
  Age: 61 Year
  Sex: Male
  Weight: 63.6 kg

DRUGS (1)
  1. SUCCINYLCHOLINE [Suspect]
     Dosage: 5MG OTHER IV
     Route: 042
     Dates: start: 20130611, end: 20130612

REACTIONS (2)
  - Respiratory arrest [None]
  - Procedural complication [None]
